FAERS Safety Report 20880929 (Version 1)
Quarter: 2022Q2

REPORT INFORMATION
  Report Type: Spontaneous
  Country: US (occurrence: US)
  Receive Date: 20220526
  Receipt Date: 20220526
  Transmission Date: 20220721
  Serious: No
  Sender: FDA-Public Use
  Company Number: US-RADIUS HEALTH INC.-2021US005537

PATIENT
  Age: 63 Year
  Sex: Female
  Weight: 91.156 kg

DRUGS (10)
  1. TYMLOS [Suspect]
     Active Substance: ABALOPARATIDE
     Indication: Illness
     Dosage: 80 MCG, DAILY
     Route: 058
     Dates: start: 20211111
  2. TYMLOS [Suspect]
     Active Substance: ABALOPARATIDE
     Dosage: 40 MCG, DAILY
     Route: 058
  3. TYMLOS [Suspect]
     Active Substance: ABALOPARATIDE
     Dosage: 80 MCG, DAILY
     Route: 058
  4. COVID-19 VACCINE [Concomitant]
     Indication: Product used for unknown indication
  5. SINGULAIR [Concomitant]
     Active Substance: MONTELUKAST SODIUM
     Dosage: 10 MG, UNK
     Route: 048
  6. VITAMIN D2 [Concomitant]
     Active Substance: ERGOCALCIFEROL
     Indication: Product used for unknown indication
     Dosage: 10 MCG, UNK
     Route: 048
  7. VITAMIN B12 [Concomitant]
     Active Substance: CYANOCOBALAMIN
     Indication: Product used for unknown indication
     Dosage: 1000 MCG, UNK
     Route: 048
  8. NOVOLOG [Concomitant]
     Active Substance: INSULIN ASPART
     Indication: Product used for unknown indication
     Route: 058
  9. METFORMIN [Concomitant]
     Active Substance: METFORMIN HYDROCHLORIDE
     Indication: Product used for unknown indication
     Route: 048
  10. XIGDUO XR [Concomitant]
     Active Substance: DAPAGLIFLOZIN PROPANEDIOL\METFORMIN HYDROCHLORIDE
     Indication: Product used for unknown indication
     Dosage: 10-1000MG, Q24H
     Route: 048

REACTIONS (7)
  - Illness [Recovered/Resolved]
  - Retching [Recovered/Resolved]
  - Vomiting [Recovered/Resolved]
  - Malaise [Recovered/Resolved]
  - Abdominal pain upper [Recovered/Resolved]
  - Product dose omission issue [Recovered/Resolved]
  - Off label use [Recovered/Resolved]

NARRATIVE: CASE EVENT DATE: 20211113
